FAERS Safety Report 14167748 (Version 1)
Quarter: 2017Q4

REPORT INFORMATION
  Report Type: Report from Study
  Country: US (occurrence: US)
  Receive Date: 20171108
  Receipt Date: 20171108
  Transmission Date: 20180321
  Serious: No
  Sender: FDA-Public Use
  Company Number: PHEH2017US036036

PATIENT
  Sex: Female

DRUGS (1)
  1. COSENTYX [Suspect]
     Active Substance: SECUKINUMAB
     Indication: PSORIASIS
     Dosage: UNK UNK, QW
     Route: 058

REACTIONS (6)
  - Nasopharyngitis [Unknown]
  - Lacrimation increased [Unknown]
  - Inflammation [Unknown]
  - Rhinorrhoea [Unknown]
  - Pruritus [Unknown]
  - Stress [Unknown]
